FAERS Safety Report 11523334 (Version 2)
Quarter: 2015Q3

REPORT INFORMATION
  Report Type: Report from Study
  Country: BR (occurrence: BR)
  Receive Date: 20150918
  Receipt Date: 20150921
  Transmission Date: 20151125
  Serious: Yes (Disabling)
  Sender: FDA-Public Use
  Company Number: BR-ABBVIE-15P-020-1465486-00

PATIENT
  Sex: Female
  Weight: 68 kg

DRUGS (9)
  1. DEPAKOTE ER [Suspect]
     Active Substance: DIVALPROEX SODIUM
     Dosage: 1000MG; 500MG IN THE MORNING AND 500MG AT NIGHT
     Route: 048
     Dates: start: 2015
  2. DEPAKOTE ER [Suspect]
     Active Substance: DIVALPROEX SODIUM
     Indication: BIPOLAR DISORDER
     Dosage: 500MG; IN THE MORNING
     Route: 048
     Dates: start: 2012, end: 2015
  3. OMEGA-3 ACIDS [Concomitant]
     Active Substance: OMEGA-3 FATTY ACIDS
     Indication: MULTIPLE SCLEROSIS
     Route: 048
     Dates: start: 2013
  4. VITAMINS NOS [Concomitant]
     Active Substance: VITAMINS
     Indication: MULTIPLE SCLEROSIS
     Route: 048
     Dates: start: 2013
  5. DEPAKOTE [Suspect]
     Active Substance: DIVALPROEX SODIUM
     Dosage: 250MG; IN THE MORNING
     Route: 048
     Dates: start: 2012, end: 2012
  6. VITAMIN D [Concomitant]
     Active Substance: CHOLECALCIFEROL
     Indication: MULTIPLE SCLEROSIS
     Route: 048
     Dates: start: 2013
  7. DEPAKOTE [Suspect]
     Active Substance: DIVALPROEX SODIUM
     Indication: BIPOLAR DISORDER
     Dosage: DID NOT USE THE WRONG MEDICATION
     Route: 065
  8. AVONEX [Suspect]
     Active Substance: INTERFERON BETA-1A
     Indication: MULTIPLE SCLEROSIS
     Route: 030
  9. PROCIMAX [Concomitant]
     Active Substance: CITALOPRAM HYDROBROMIDE
     Indication: DEPRESSION
     Dosage: 20MG; IN THE MORNING
     Route: 048
     Dates: start: 2005

REACTIONS (2)
  - Drug dispensing error [Unknown]
  - Multiple sclerosis [Not Recovered/Not Resolved]

NARRATIVE: CASE EVENT DATE: 2013
